FAERS Safety Report 7290372-5 (Version None)
Quarter: 2011Q1

REPORT INFORMATION
  Report Type: 
  Country: None (occurrence: None)
  Receive Date: 20110131
  Receipt Date: 20101231
  Transmission Date: 20110831
  Serious: Yes (Death)
  Sender: FDA-Public Use
  Company Number: AUR-APL-2011-00193

PATIENT
  Age: 37 Year
  Sex: Female

DRUGS (14)
  1. ARIPIPRAZOLE [Suspect]
     Dosage: ORAL
     Route: 048
  2. BUPROPION [Suspect]
     Dosage: ORAL
     Route: 048
  3. METFORMIN HCL [Suspect]
     Dosage: ORAL
     Route: 048
  4. SIMVASTATIN [Suspect]
     Dosage: ORAL
     Route: 048
  5. PREDNISONE [Suspect]
     Dosage: ORAL
     Route: 048
  6. OXCARBAZEPINE [Suspect]
     Dosage: ORAL
     Route: 048
  7. CLONAZEPAM [Suspect]
     Dosage: ORAL
     Route: 048
  8. ETHANOL [Suspect]
     Dosage: ORAL
     Route: 048
  9. TOPIRAMATE [Suspect]
     Dosage: ORAL
     Route: 048
  10. FENTANYL [Suspect]
     Dosage: ORAL
     Route: 048
  11. LEVOTHYROXINE [Suspect]
     Dosage: ORAL
     Route: 048
  12. GEMFIBROZIL [Suspect]
     Dosage: ORAL
     Route: 048
  13. RANITIDINE [Suspect]
     Dosage: ORAL
     Route: 048
  14. DULOXETINE [Suspect]
     Dosage: ORAL
     Route: 048

REACTIONS (3)
  - RESPIRATORY ARREST [None]
  - TOXICITY TO VARIOUS AGENTS [None]
  - CARDIAC ARREST [None]
